FAERS Safety Report 7293895-8 (Version None)
Quarter: 2011Q1

REPORT INFORMATION
  Report Type: 
  Country: None (occurrence: None)
  Receive Date: 20110202
  Receipt Date: 20110118
  Transmission Date: 20110831
  Serious: Yes (Other)
  Sender: FDA-Public Use
  Company Number: AUR-APL-2011-00313

PATIENT

DRUGS (2)
  1. LOSARTAN FILM-COATED TABLET [Suspect]
  2. SPIRONOLACTONE [Suspect]
     Dosage: 10 MG, ORAL
     Route: 048

REACTIONS (2)
  - DRUG DISPENSING ERROR [None]
  - PRODUCT OUTER PACKAGING ISSUE [None]
